FAERS Safety Report 25865659 (Version 1)
Quarter: 2025Q3

REPORT INFORMATION
  Report Type: Report from Study
  Country: US (occurrence: US)
  Receive Date: 20250930
  Receipt Date: 20250930
  Transmission Date: 20251020
  Serious: Yes (Hospitalization)
  Sender: BAYER HEALTHCARE PHARMACEUTICALS INC.
  Company Number: US-BAYER-2025A116522

PATIENT
  Age: 75 Year
  Sex: Male

DRUGS (19)
  1. NUBEQA [Suspect]
     Active Substance: DAROLUTAMIDE
     Indication: Prostate cancer
     Dosage: 600 MG, BID
     Route: 048
     Dates: start: 20250829, end: 20250902
  2. AMBIEN [Concomitant]
     Active Substance: ZOLPIDEM TARTRATE
  3. ATORVASTATIN [Concomitant]
     Active Substance: ATORVASTATIN
  4. CARVEDILOL [Concomitant]
     Active Substance: CARVEDILOL
  5. DESVENLAFAXINE [Concomitant]
     Active Substance: DESVENLAFAXINE
  6. DEXAMETHASONE [Concomitant]
     Active Substance: DEXAMETHASONE
  7. DOCETAXEL [Concomitant]
     Active Substance: DOCETAXEL
  8. ELIGARD [Concomitant]
     Active Substance: LEUPROLIDE ACETATE
  9. FENOFIBRATE [Concomitant]
     Active Substance: FENOFIBRATE
  10. FENTANYL [Concomitant]
     Active Substance: FENTANYL
  11. GLIMEPIRIDE [Concomitant]
     Active Substance: GLIMEPIRIDE
  12. ACETAMINOPHEN\HYDROCODONE [Concomitant]
     Active Substance: ACETAMINOPHEN\HYDROCODONE
  13. LEUPROLIDE ACETATE [Concomitant]
     Active Substance: LEUPROLIDE ACETATE
  14. MEMANTINE [Concomitant]
     Active Substance: MEMANTINE
  15. ONDANSETRON [Concomitant]
     Active Substance: ONDANSETRON
  16. REXULTI [Concomitant]
     Active Substance: BREXPIPRAZOLE
  17. VALSARTAN [Concomitant]
     Active Substance: VALSARTAN
  18. XANAX [Concomitant]
     Active Substance: ALPRAZOLAM
  19. ZOFRAN [Concomitant]
     Active Substance: ONDANSETRON HYDROCHLORIDE

REACTIONS (4)
  - Diarrhoea [Not Recovered/Not Resolved]
  - Vomiting [Not Recovered/Not Resolved]
  - Muscular weakness [Not Recovered/Not Resolved]
  - Stomatitis [Not Recovered/Not Resolved]

NARRATIVE: CASE EVENT DATE: 20250901
